FAERS Safety Report 7457063-9 (Version None)
Quarter: 2011Q2

REPORT INFORMATION
  Report Type: 
  Country: None (occurrence: None)
  Receive Date: 20110504
  Receipt Date: 20100527
  Transmission Date: 20111010
  Serious: No
  Sender: FDA-Public Use
  Company Number: US-SANOFI-AVENTIS-2010SA031960

PATIENT
  Age: 52 Year
  Sex: Male
  Weight: 81.65 kg

DRUGS (6)
  1. APIDRA [Suspect]
     Indication: CYSTIC FIBROSIS RELATED DIABETES
     Dosage: DOSE:2 UNIT(S)
     Route: 058
     Dates: start: 20100526
  2. LANTUS [Suspect]
     Indication: CYSTIC FIBROSIS RELATED DIABETES
     Dates: start: 20100526
  3. LANTUS [Suspect]
     Dates: start: 20100526
  4. LANTUS [Concomitant]
     Indication: CYSTIC FIBROSIS RELATED DIABETES
     Dosage: DOSE:12 UNIT(S)
     Route: 058
     Dates: start: 20090101
  5. STARLIX [Concomitant]
     Route: 065
  6. APIDRA [Suspect]
     Dosage: DOSE:2 UNIT(S)
     Route: 058
     Dates: start: 20100526

REACTIONS (4)
  - HYPERSENSITIVITY [None]
  - HYPOAESTHESIA ORAL [None]
  - DYSARTHRIA [None]
  - DYSGEUSIA [None]
